FAERS Safety Report 5937609-X (Version None)
Quarter: 2008Q4

REPORT INFORMATION
  Report Type: 
  Country: None (occurrence: None)
  Receive Date: 20081029
  Receipt Date: 20081021
  Transmission Date: 20090506
  Serious: Yes (Hospitalization)
  Sender: FDA-Public Use
  Company Number: 2008JP005050

PATIENT
  Age: 75 Year
  Sex: Male

DRUGS (6)
  1. VESICARE [Suspect]
     Indication: POLLAKIURIA
     Dosage: 5 MG, UNKNOWN D, ORAL
     Route: 048
     Dates: start: 20081002, end: 20081004
  2. URIEF [Concomitant]
  3. EVIPROSTAT (CHIMAPHILA UMBELLATA, EQUISETUM ARVENSE, PULSATILLA PRATEN [Concomitant]
  4. LOXONIN (LOXOPROFEN SODIUM) TABLET [Concomitant]
  5. MUCOSTA (REBAMIPIDE) TABLET [Concomitant]
  6. BUSCOPAN (HYOSCINE BUTYLBROMIDE) INJECTION [Concomitant]

REACTIONS (2)
  - ARTHRALGIA [None]
  - PANCREATITIS ACUTE [None]
